FAERS Safety Report 15450165 (Version 5)
Quarter: 2020Q4

REPORT INFORMATION
  Report Type: Spontaneous
  Country: US (occurrence: US)
  Receive Date: 20181001
  Receipt Date: 20201229
  Transmission Date: 20210113
  Serious: No
  Sender: FDA-Public Use
  Company Number: US-PFIZER INC-2018391666

PATIENT
  Age: 63 Year
  Sex: Female
  Weight: 104.31 kg

DRUGS (3)
  1. ADVIL [Suspect]
     Active Substance: IBUPROFEN
     Dosage: UNK
  2. ASA [Suspect]
     Active Substance: ASPIRIN
     Dosage: UNK
  3. NIACIN. [Suspect]
     Active Substance: NIACIN
     Dosage: UNK

REACTIONS (1)
  - Drug hypersensitivity [Unknown]
